FAERS Safety Report 6982877-9 (Version None)
Quarter: 2010Q3

REPORT INFORMATION
  Report Type: 
  Country: None (occurrence: None)
  Receive Date: 20100914
  Receipt Date: 20100426
  Transmission Date: 20110219
  Serious: Yes (Other)
  Sender: FDA-Public Use
  Company Number: US-PFIZER INC-2010046712

PATIENT
  Sex: Male
  Weight: 90.703 kg

DRUGS (3)
  1. LYRICA [Suspect]
     Indication: PAIN IN EXTREMITY
     Dosage: 50 MG, 1X/DAY
     Route: 048
     Dates: start: 20100201, end: 20100101
  2. COLOSTRUM [Concomitant]
     Indication: NEOPLASM MALIGNANT
     Dosage: UNK
     Route: 048
  3. VITAMIN D [Concomitant]
     Indication: NEOPLASM MALIGNANT
     Dosage: UNK

REACTIONS (3)
  - LOCALISED OEDEMA [None]
  - OEDEMA PERIPHERAL [None]
  - WEIGHT INCREASED [None]
